FAERS Safety Report 23273815 (Version 1)
Quarter: 2023Q4

REPORT INFORMATION
  Report Type: Report from Study
  Country: US (occurrence: US)
  Receive Date: 20231207
  Receipt Date: 20231207
  Transmission Date: 20240109
  Serious: Yes (Hospitalization, Other)
  Sender: FDA-Public Use
  Company Number: US-TAKEDA-2023TUS103270

PATIENT
  Age: 67 Year
  Sex: Male
  Weight: 140.9 kg

DRUGS (26)
  1. BORTEZOMIB [Suspect]
     Active Substance: BORTEZOMIB
     Indication: Primary amyloidosis
     Dosage: 3.5 MILLIGRAM, 1/WEEK
     Route: 058
     Dates: start: 20230526
  2. DARZALEX [Suspect]
     Active Substance: DARATUMUMAB
     Indication: Product used for unknown indication
     Dosage: UNK
     Route: 065
     Dates: start: 20230526
  3. DEXAMETHASONE [Suspect]
     Active Substance: DEXAMETHASONE
     Indication: Product used for unknown indication
     Dosage: UNK
     Route: 065
     Dates: start: 20230526
  4. CYCLOPHOSPHAMIDE [Suspect]
     Active Substance: CYCLOPHOSPHAMIDE
     Indication: Product used for unknown indication
     Dosage: UNK
     Route: 065
     Dates: start: 20230526
  5. ONDANSETRON [Concomitant]
     Active Substance: ONDANSETRON
     Dosage: UNK
     Route: 065
     Dates: start: 20230927
  6. APIXABAN [Concomitant]
     Active Substance: APIXABAN
     Dosage: UNK
     Route: 065
     Dates: start: 20230707
  7. ACYCLOVIR [Concomitant]
     Active Substance: ACYCLOVIR
     Dosage: UNK
     Route: 065
     Dates: start: 20230512
  8. ALBUTEROL [Concomitant]
     Active Substance: ALBUTEROL
     Dosage: UNK
     Route: 065
     Dates: start: 20230206
  9. ALBUTEROL [Concomitant]
     Active Substance: ALBUTEROL
     Dosage: UNK
     Route: 065
     Dates: start: 20221222
  10. ALLOPURINOL [Concomitant]
     Active Substance: ALLOPURINOL
     Dosage: UNK
     Route: 065
     Dates: start: 20230804
  11. BUPROPION HYDROCHLORIDE XL [Concomitant]
     Active Substance: BUPROPION HYDROCHLORIDE
     Dosage: UNK
     Route: 065
     Dates: start: 20230804
  12. ESOMEPRAZOLE [Concomitant]
     Active Substance: ESOMEPRAZOLE
     Dosage: UNK
     Route: 065
     Dates: start: 20230717
  13. FAMOTIDINE [Concomitant]
     Active Substance: FAMOTIDINE
     Dosage: UNK
     Route: 065
     Dates: start: 20230512
  14. FLUTICASONE PROPIONATE [Concomitant]
     Active Substance: FLUTICASONE PROPIONATE
     Dosage: UNK
     Route: 065
     Dates: start: 20230206
  15. FLUTICASONE FUROATE\SALMETEROL XINAFOATE [Concomitant]
     Active Substance: FLUTICASONE FUROATE\SALMETEROL XINAFOATE
     Dosage: UNK
     Route: 065
     Dates: start: 20230810
  16. GLUCAGON [Concomitant]
     Active Substance: GLUCAGON\GLUCAGON HYDROCHLORIDE\WATER
     Dosage: UNK
     Route: 065
     Dates: start: 20230906
  17. GUAIFENESIN [Concomitant]
     Active Substance: GUAIFENESIN
     Dosage: UNK
     Route: 065
     Dates: start: 20230308
  18. INSULIN ASPART [Concomitant]
     Active Substance: INSULIN ASPART
     Dosage: UNK
     Route: 065
     Dates: start: 20230321
  19. LEVOTHYROXINE [Concomitant]
     Active Substance: LEVOTHYROXINE
     Dosage: UNK
     Route: 065
     Dates: start: 20230707
  20. LOVAZA [Concomitant]
     Active Substance: OMEGA-3-ACID ETHYL ESTERS
     Dosage: UNK
     Route: 065
     Dates: start: 20230206
  21. POTASSIUM CHLORIDE [Concomitant]
     Active Substance: POTASSIUM CHLORIDE
     Dosage: UNK
     Route: 065
     Dates: start: 20230608
  22. PRAVASTATIN [Concomitant]
     Active Substance: PRAVASTATIN
     Dosage: UNK
     Route: 065
     Dates: start: 20230206
  23. PREGABALIN [Concomitant]
     Active Substance: PREGABALIN
     Dosage: UNK
     Route: 065
     Dates: start: 20230906
  24. TORSEMIDE [Concomitant]
     Active Substance: TORSEMIDE
     Dosage: UNK
     Route: 065
     Dates: start: 20230816
  25. TRAZODONE [Concomitant]
     Active Substance: TRAZODONE HYDROCHLORIDE
     Dosage: UNK
     Route: 065
     Dates: start: 20230719
  26. ALPRAZOLAM [Concomitant]
     Active Substance: ALPRAZOLAM
     Dosage: UNK
     Route: 065
     Dates: start: 20230608

REACTIONS (3)
  - Pneumonia [Recovered/Resolved with Sequelae]
  - Cardiac failure [Unknown]
  - Off label use [Unknown]

NARRATIVE: CASE EVENT DATE: 20231010
